FAERS Safety Report 8294040-2 (Version None)
Quarter: 2012Q2

REPORT INFORMATION
  Report Type: 
  Country: None (occurrence: None)
  Receive Date: 20120418
  Receipt Date: 20120412
  Transmission Date: 20120825
  Serious: Yes (Other)
  Sender: FDA-Public Use
  Company Number: DE-PFIZER INC-2012091931

PATIENT
  Age: 53 Year
  Sex: Male
  Weight: 86.5 kg

DRUGS (13)
  1. SOMATROPIN [Suspect]
     Dosage: 0.1 UNK, 1X/DAY
     Dates: start: 20020322
  2. SOMATROPIN [Suspect]
     Dosage: 0.2 UNK, 1X/DAY
     Dates: start: 20020329
  3. SOMATROPIN [Suspect]
     Dosage: 0.8 UNK, 1X/DAY
     Dates: start: 20080416
  4. TESTOSTERONE [Concomitant]
     Dosage: 25 UNK, DAILY
     Dates: start: 20080416
  5. SOMATROPIN [Suspect]
     Dosage: 0.3 UNK, 1X/DAY
     Dates: start: 20020405
  6. CORTISONE ACETATE [Concomitant]
     Indication: BLOOD CORTICOTROPHIN DECREASED
     Dosage: 12.5 MG, DAILY
     Dates: start: 19970701, end: 20011231
  7. SOMATROPIN [Suspect]
     Dosage: 0.6 UNK, 1X/DAY
     Dates: start: 20020426
  8. PRASTERONE [Concomitant]
     Indication: BLOOD CORTICOTROPHIN DECREASED
     Dosage: 25MG DAILY / 10MG TWICE DAILY
     Dates: start: 20020101
  9. SOMATROPIN [Suspect]
     Dosage: 1 UNK, 1X/DAY
     Dates: start: 20100115
  10. SOMATROPIN [Suspect]
     Dosage: 0.4 UNK, 1X/DAY
     Dates: start: 20020412
  11. SOMATROPIN [Suspect]
     Dosage: 0.5 UNK, 1X/DAY
     Dates: start: 20020419
  12. HYDROCORTISONE [Concomitant]
     Dosage: 20 MG, DAILY
     Dates: start: 20020101
  13. SOMATROPIN [Suspect]
     Dosage: 0.9 UNK, 1X/DAY
     Dates: start: 20090101

REACTIONS (1)
  - NEOPLASM [None]
